FAERS Safety Report 12835249 (Version 1)
Quarter: 2016Q4

REPORT INFORMATION
  Report Type: Spontaneous
  Country: US (occurrence: US)
  Receive Date: 20161011
  Receipt Date: 20161011
  Transmission Date: 20170207
  Serious: Yes (Hospitalization, Other)
  Sender: FDA-Public Use
  Company Number: US-ROCHE-1839498

PATIENT
  Age: 79 Year
  Sex: Female

DRUGS (5)
  1. AVASTIN [Suspect]
     Active Substance: BEVACIZUMAB
     Indication: COLON CANCER
     Route: 065
     Dates: start: 20160829
  2. XELODA [Suspect]
     Active Substance: CAPECITABINE
     Dosage: 3 TABLETS TWICE A DAY, 7 DAYS ON THEN 7 OFF
     Route: 048
     Dates: start: 20160808
  3. XELODA [Suspect]
     Active Substance: CAPECITABINE
     Indication: LYMPHOMA
     Dosage: 4 TABLETS TWICE A DAY 2 WEEKS ON  THEN 1 WEEK OFF
     Route: 048
     Dates: start: 201501, end: 201507
  4. VITAMIN B6 [Concomitant]
     Active Substance: PYRIDOXINE HYDROCHLORIDE
  5. DGL DEGLYCYRRHIZINATE [Concomitant]
     Indication: PHYTOTHERAPY

REACTIONS (9)
  - Diarrhoea [Recovering/Resolving]
  - Liver disorder [Unknown]
  - Abdominal pain upper [Recovering/Resolving]
  - Lymphoma [Unknown]
  - Neuropathy peripheral [Recovering/Resolving]
  - Pain in extremity [Recovering/Resolving]
  - Gastric disorder [Recovering/Resolving]
  - Abdominal distension [Recovering/Resolving]
  - Gastritis [Recovering/Resolving]

NARRATIVE: CASE EVENT DATE: 201607
